FAERS Safety Report 10274424 (Version 1)
Quarter: 2014Q3

REPORT INFORMATION
  Report Type: Spontaneous
  Country: GB (occurrence: GB)
  Receive Date: 20140702
  Receipt Date: 20140702
  Transmission Date: 20150326
  Serious: Yes (Hospitalization, Disabling, Other)
  Sender: FDA-Public Use
  Company Number: GB-WATSON-2014-14257

PATIENT
  Age: 36 Year
  Sex: Female
  Weight: 57 kg

DRUGS (15)
  1. TRAMADOL (UNKNOWN) [Suspect]
     Active Substance: TRAMADOL
     Indication: DEPRESSION
     Dosage: UNK
     Route: 065
  2. CETIRIZINE (UNKNOWN) [Suspect]
     Active Substance: CETIRIZINE HYDROCHLORIDE
     Indication: MENINGOENCEPHALITIS VIRAL
     Dosage: 10 MG, UNKNOWN
     Route: 048
  3. CLARITHROMYCIN. [Concomitant]
     Active Substance: CLARITHROMYCIN
     Indication: PRODUCT USED FOR UNKNOWN INDICATION
     Dosage: UNK
     Route: 065
  4. SALBUTAMOL [Concomitant]
     Active Substance: ALBUTEROL
     Indication: PRODUCT USED FOR UNKNOWN INDICATION
     Dosage: UNK
     Route: 065
  5. VENLAFAXINE [Concomitant]
     Active Substance: VENLAFAXINE HYDROCHLORIDE
     Indication: PRODUCT USED FOR UNKNOWN INDICATION
     Dosage: UNK
     Route: 065
  6. SERTRALINE [Suspect]
     Active Substance: SERTRALINE HYDROCHLORIDE
     Indication: MENINGOENCEPHALITIS VIRAL
     Dosage: 50 MG, UNKNOWN
     Route: 048
  7. BUCCASTEM [Concomitant]
     Indication: PRODUCT USED FOR UNKNOWN INDICATION
     Dosage: UNK
     Route: 065
  8. PARACETAMOL [Concomitant]
     Active Substance: ACETAMINOPHEN
     Indication: PRODUCT USED FOR UNKNOWN INDICATION
     Dosage: UNK
     Route: 065
  9. PREDNISOLONE. [Concomitant]
     Active Substance: PREDNISOLONE
     Indication: PRODUCT USED FOR UNKNOWN INDICATION
     Dosage: UNK
     Route: 065
  10. CLOZAPINE. [Concomitant]
     Active Substance: CLOZAPINE
     Indication: INSOMNIA
     Dosage: UNK
     Route: 065
  11. FOSTAIR [Concomitant]
     Indication: PRODUCT USED FOR UNKNOWN INDICATION
     Dosage: UNK
     Route: 065
  12. ACICLOVIR [Concomitant]
     Active Substance: ACYCLOVIR
     Indication: PRODUCT USED FOR UNKNOWN INDICATION
     Dosage: UNK
     Route: 065
  13. LORAZEPAM. [Concomitant]
     Active Substance: LORAZEPAM
     Indication: PRODUCT USED FOR UNKNOWN INDICATION
     Dosage: UNK
     Route: 065
  14. MIRTAZAPINE (UNKNOWN) [Suspect]
     Active Substance: MIRTAZAPINE
     Indication: MENINGOENCEPHALITIS VIRAL
     Dosage: 30 MG, UNKNOWN
     Route: 048
  15. LACTULOSE. [Concomitant]
     Active Substance: LACTULOSE
     Indication: PRODUCT USED FOR UNKNOWN INDICATION
     Dosage: UNK
     Route: 065

REACTIONS (24)
  - Convulsion [Not Recovered/Not Resolved]
  - Fatigue [Not Recovered/Not Resolved]
  - Energy increased [Unknown]
  - Confusional state [Not Recovered/Not Resolved]
  - Dizziness [Not Recovered/Not Resolved]
  - Visual impairment [Unknown]
  - Contusion [Not Recovered/Not Resolved]
  - Weight decreased [Not Recovered/Not Resolved]
  - Fall [Unknown]
  - Feeling drunk [Unknown]
  - Memory impairment [Unknown]
  - Fatigue [Unknown]
  - Loss of consciousness [Not Recovered/Not Resolved]
  - Asthenia [Unknown]
  - Tremor [Not Recovered/Not Resolved]
  - Dysarthria [Unknown]
  - Paraesthesia [Unknown]
  - Pain [Not Recovered/Not Resolved]
  - Faecal incontinence [Unknown]
  - Joint stiffness [Not Recovered/Not Resolved]
  - Erythema [Not Recovered/Not Resolved]
  - Urinary tract infection [Not Recovered/Not Resolved]
  - Headache [Unknown]
  - Sleep disorder [Unknown]
